FAERS Safety Report 14604687 (Version 1)
Quarter: 2018Q1

REPORT INFORMATION
  Report Type: Spontaneous
  Country: GB (occurrence: GB)
  Receive Date: 20180306
  Receipt Date: 20180306
  Transmission Date: 20180509
  Serious: Yes (Hospitalization)
  Sender: FDA-Public Use
  Company Number: GB-009507513-1802GBR012833

PATIENT
  Age: 49 Year
  Sex: Male
  Weight: 70.6 kg

DRUGS (9)
  1. SEPTRIN [Concomitant]
     Active Substance: SULFAMETHOXAZOLE\TRIMETHOPRIM
  2. RALTEGRAVIR POTASSIUM [Suspect]
     Active Substance: RALTEGRAVIR POTASSIUM
     Indication: ACQUIRED IMMUNODEFICIENCY SYNDROME
     Dosage: 400 MG, UNK
     Route: 048
     Dates: end: 20171030
  3. FOLINIC ACID [Concomitant]
     Active Substance: LEUCOVORIN
  4. CLINDAMYCIN. [Concomitant]
     Active Substance: CLINDAMYCIN
  5. AMOXICILLIN (+) CLAVULANATE POTASSIUM [Concomitant]
     Active Substance: AMOXICILLIN\CLAVULANATE POTASSIUM
  6. ATOVAQUONE. [Concomitant]
     Active Substance: ATOVAQUONE
  7. PYRIMETHAMINE [Concomitant]
     Active Substance: PYRIMETHAMINE
  8. TRUVADA [Concomitant]
     Active Substance: EMTRICITABINE\TENOFOVIR DISOPROXIL FUMARATE
  9. FLUCONAZOLE. [Concomitant]
     Active Substance: FLUCONAZOLE

REACTIONS (3)
  - Exfoliative rash [Unknown]
  - Liver function test abnormal [Unknown]
  - Drug reaction with eosinophilia and systemic symptoms [Not Recovered/Not Resolved]
